FAERS Safety Report 17262710 (Version 1)
Quarter: 2020Q1

REPORT INFORMATION
  Report Type: Spontaneous
  Country: US (occurrence: US)
  Receive Date: 20200113
  Receipt Date: 20200113
  Transmission Date: 20200409
  Serious: Yes (Death, Hospitalization)
  Sender: FDA-Public Use
  Company Number: US-BAYER-2020-002429

PATIENT
  Age: 67 Year
  Sex: Female

DRUGS (14)
  1. QUETIAPINE. [Suspect]
     Active Substance: QUETIAPINE
  2. GABAPENTIN. [Suspect]
     Active Substance: GABAPENTIN
  3. ANALGESIC COMBINATION [ANTIPYRINE\BELLADONNA LEAF\CAFFEINE CITRATE\CODEINE PHOSPHATE\PHENACETIN\PHENOBARBITAL] [Suspect]
     Active Substance: ANTIPYRINE\BELLADONNA LEAF\CAFFEINE CITRATE\CODEINE PHOSPHATE\PHENACETIN\PHENOBARBITAL
  4. IBUPROFEN. [Suspect]
     Active Substance: IBUPROFEN
  5. HYDROXYZINE [Suspect]
     Active Substance: HYDROXYZINE HYDROCHLORIDE
  6. QUETIAPINE. [Suspect]
     Active Substance: QUETIAPINE
  7. CLONAZEPAM. [Suspect]
     Active Substance: CLONAZEPAM
  8. PARACETAMOL [Suspect]
     Active Substance: ACETAMINOPHEN
     Route: 048
  9. OXYCODONE [Suspect]
     Active Substance: OXYCODONE
  10. QUETIAPINE. [Suspect]
     Active Substance: QUETIAPINE
  11. DEXTROMETHORPHAN [Suspect]
     Active Substance: DEXTROMETHORPHAN
  12. SERTRALINE [Suspect]
     Active Substance: SERTRALINE HYDROCHLORIDE
  13. QUETIAPINE. [Suspect]
     Active Substance: QUETIAPINE
  14. LAMOTRIGINE. [Suspect]
     Active Substance: LAMOTRIGINE

REACTIONS (2)
  - Toxicity to various agents [Fatal]
  - Product use issue [Fatal]
